FAERS Safety Report 10407923 (Version 2)
Quarter: 2014Q3

REPORT INFORMATION
  Report Type: Report from Study
  Country: DK (occurrence: DK)
  Receive Date: 20140825
  Receipt Date: 20140912
  Transmission Date: 20150326
  Serious: Yes (Hospitalization)
  Sender: FDA-Public Use
  Company Number: DK-EXELIXIS-XL18414004644

PATIENT
  Age: 67 Year
  Sex: Male
  Weight: 81 kg

DRUGS (16)
  1. XL184 [Suspect]
     Active Substance: CABOZANTINIB
     Indication: RENAL CELL CARCINOMA
     Dosage: 60 MG, QD
     Route: 048
     Dates: start: 20140528, end: 2014
  2. PARACETAMOL [Concomitant]
     Active Substance: ACETAMINOPHEN
  3. IMOVANE [Concomitant]
     Active Substance: ZOPICLONE
  4. BISACODYL. [Concomitant]
     Active Substance: BISACODYL
  5. AMITRIPTYLINE HYDROCHLORIDE. [Concomitant]
     Active Substance: AMITRIPTYLINE HYDROCHLORIDE
  6. FOLACID [Concomitant]
  7. CALCIUM [Concomitant]
     Active Substance: CALCIUM
  8. ATORVASTATIN [Concomitant]
     Active Substance: ATORVASTATIN
  9. PROPANTHELINE BROMIDE. [Concomitant]
     Active Substance: PROPANTHELINE BROMIDE
  10. NORTRIPTYLINE HYDROCHLORIDE. [Concomitant]
     Active Substance: NORTRIPTYLINE HYDROCHLORIDE
  11. NATRIUMPICOSULFAT [Concomitant]
  12. DOMPERIDON [Concomitant]
     Active Substance: DOMPERIDONE
  13. XL184 [Suspect]
     Active Substance: CABOZANTINIB
     Dosage: 20 MG, QD
     Route: 048
     Dates: start: 2014, end: 20140807
  14. METHADONE HYDROCHLORIDE. [Concomitant]
     Active Substance: METHADONE HYDROCHLORIDE
  15. MORPHINE CHLORIDE [Concomitant]
     Active Substance: MORPHINE HYDROCHLORIDE
  16. MOVICOL [Concomitant]
     Active Substance: POLYETHYLENE GLYCOL 3350\POTASSIUM CHLORIDE\SODIUM BICARBONATE\SODIUM CHLORIDE

REACTIONS (1)
  - Pyrexia [Recovered/Resolved]

NARRATIVE: CASE EVENT DATE: 20140808
